FAERS Safety Report 5059629-2 (Version None)
Quarter: 2006Q3

REPORT INFORMATION
  Report Type: 
  Country: None (occurrence: None)
  Receive Date: 20060724
  Receipt Date: 20060712
  Transmission Date: 20061208
  Serious: Yes (Hospitalization)
  Sender: FDA-Public Use
  Company Number: JP-GILEAD-2006-0009861

PATIENT
  Sex: Male

DRUGS (6)
  1. EMTRIVA [Suspect]
     Indication: HIV INFECTION
     Route: 048
     Dates: start: 20060111
  2. RETROVIR [Suspect]
     Indication: HIV INFECTION
     Route: 048
     Dates: start: 20060111, end: 20060515
  3. KALETRA [Concomitant]
     Indication: HIV INFECTION
     Dates: start: 20060111
  4. URSO [Concomitant]
     Dates: start: 20060111
  5. ZITHROMAC [Concomitant]
     Dates: start: 20060111, end: 20060515
  6. VALIXA [Concomitant]
     Dates: start: 20060111, end: 20060403

REACTIONS (2)
  - ANAEMIA [None]
  - BONE MARROW FAILURE [None]
